FAERS Safety Report 7267069-0 (Version None)
Quarter: 2011Q1

REPORT INFORMATION
  Report Type: 
  Country: None (occurrence: None)
  Receive Date: 20110201
  Receipt Date: 20110120
  Transmission Date: 20110831
  Serious: Yes (Hospitalization, Other)
  Sender: FDA-Public Use
  Company Number: PHHY2011FR04829

PATIENT
  Age: 58 Year
  Sex: Female

DRUGS (2)
  1. DOLIPRANE [Concomitant]
     Indication: PROPHYLAXIS
     Dosage: UNK
  2. EXTAVIA [Suspect]
     Indication: MULTIPLE SCLEROSIS
     Dosage: 1 ML, QOD
     Dates: start: 20101006

REACTIONS (6)
  - INSOMNIA [None]
  - BLOOD PRESSURE DECREASED [None]
  - PYREXIA [None]
  - MALAISE [None]
  - SYNCOPE [None]
  - TACHYCARDIA [None]
